FAERS Safety Report 11517119 (Version 1)
Quarter: 2015Q3

REPORT INFORMATION
  Report Type: Spontaneous
  Country: US (occurrence: US)
  Receive Date: 20150917
  Receipt Date: 20150917
  Transmission Date: 20151125
  Serious: No
  Sender: FDA-Public Use
  Company Number: US-ASTRAZENECA-2015SE86530

PATIENT
  Sex: Male
  Weight: 67.1 kg

DRUGS (6)
  1. ANTACID [Concomitant]
     Active Substance: ALUMINUM HYDROXIDE\CALCIUM CARBONATE\DIMETHICONE\MAGNESIUM HYDROXIDE
  2. TUDORZA PRESSAIR [Suspect]
     Active Substance: ACLIDINIUM BROMIDE
     Indication: EMPHYSEMA
     Dosage: 400 UG,1 OR 2 PUFFS PER DAY
     Route: 055
     Dates: start: 201508
  3. ADVAIR HFA [Concomitant]
     Active Substance: FLUTICASONE PROPIONATE\SALMETEROL XINAFOATE
     Route: 055
  4. PAIN MEDS [Concomitant]
     Active Substance: UNSPECIFIED INGREDIENT
     Indication: PAIN
  5. STOMACH MEDICATION [Concomitant]
     Indication: GASTRIC DISORDER
  6. NAUSEA MEDICATION [Concomitant]
     Active Substance: UNSPECIFIED INGREDIENT
     Indication: NAUSEA

REACTIONS (5)
  - Heart rate increased [Unknown]
  - Intentional product misuse [Unknown]
  - Drug dose omission [Unknown]
  - Oxygen saturation decreased [Unknown]
  - Product quality issue [Unknown]
